FAERS Safety Report 7854788-8 (Version None)
Quarter: 2011Q3

REPORT INFORMATION
  Report Type: 
  Country: None (occurrence: None)
  Receive Date: 20110919
  Receipt Date: 20110428
  Transmission Date: 20111222
  Serious: Yes (Hospitalization)
  Sender: FDA-Public Use
  Company Number: 116451

PATIENT
  Sex: Male

DRUGS (2)
  1. METHOTREXATE [Suspect]
     Indication: BONE SARCOMA
     Dosage: 12G/M2/LAST WEEK
  2. METHOTREXATE [Suspect]
     Indication: BONE SARCOMA
     Dosage: 1.2G/M2/LAST WEEK

REACTIONS (1)
  - BLOOD CREATINE INCREASED [None]
